FAERS Safety Report 7263666-7 (Version None)
Quarter: 2011Q1

REPORT INFORMATION
  Report Type: 
  Country: None (occurrence: None)
  Receive Date: 20110130
  Receipt Date: 20101214
  Transmission Date: 20110831
  Serious: No
  Sender: FDA-Public Use
  Company Number: US-ABBOTT-10P-163-0691980-00

PATIENT
  Sex: Male
  Weight: 114.86 kg

DRUGS (2)
  1. HUMIRA [Suspect]
     Indication: PSORIASIS
     Route: 058
     Dates: start: 20090101
  2. AVAPRO [Concomitant]
     Indication: HYPERTENSION

REACTIONS (6)
  - AXILLARY MASS [None]
  - INJECTION SITE PAIN [None]
  - AXILLARY PAIN [None]
  - INJECTION SITE SWELLING [None]
  - TINNITUS [None]
  - WRONG TECHNIQUE IN DRUG USAGE PROCESS [None]
